FAERS Safety Report 6638400-1 (Version None)
Quarter: 2010Q1

REPORT INFORMATION
  Report Type: 
  Country: None (occurrence: None)
  Receive Date: 20100317
  Receipt Date: 20100309
  Transmission Date: 20100710
  Serious: Yes (Hospitalization)
  Sender: FDA-Public Use
  Company Number: B0639005A

PATIENT
  Age: 68 Year
  Sex: Male

DRUGS (2)
  1. REQUIP XL [Suspect]
     Indication: DRUG USE FOR UNKNOWN INDICATION
     Route: 048
  2. LEVODOPA [Concomitant]
     Route: 065

REACTIONS (2)
  - GAMBLING [None]
  - SUICIDAL BEHAVIOUR [None]
